FAERS Safety Report 6628133-X (Version None)
Quarter: 2010Q1

REPORT INFORMATION
  Report Type: 
  Country: None (occurrence: None)
  Receive Date: 20100311
  Receipt Date: 20091013
  Transmission Date: 20100710
  Serious: No
  Sender: FDA-Public Use
  Company Number: A0811529A

PATIENT
  Age: 50 Year
  Sex: Female

DRUGS (1)
  1. NICORETTE [Suspect]
     Indication: SMOKING CESSATION THERAPY
     Route: 002

REACTIONS (8)
  - APHTHOUS STOMATITIS [None]
  - DRUG ADMINISTRATION ERROR [None]
  - GINGIVAL PAIN [None]
  - GLOSSITIS [None]
  - NICOTINE DEPENDENCE [None]
  - ORAL DISCOMFORT [None]
  - PRODUCT QUALITY ISSUE [None]
  - TONGUE ULCERATION [None]
